FAERS Safety Report 11660516 (Version 1)
Quarter: 2015Q4

REPORT INFORMATION
  Report Type: Spontaneous
  Country: NZ (occurrence: NZ)
  Receive Date: 20151026
  Receipt Date: 20151026
  Transmission Date: 20160304
  Serious: Yes (Hospitalization, Other)
  Sender: FDA-Public Use
  Company Number: NZ-BRISTOL-MYERS SQUIBB COMPANY-BMS-2015-072882

PATIENT
  Age: 93 Year
  Sex: Female

DRUGS (3)
  1. APIXABAN [Suspect]
     Active Substance: APIXABAN
     Indication: CEREBROVASCULAR ACCIDENT PROPHYLAXIS
     Dosage: 2.5 MG, BID
     Route: 048
     Dates: start: 20150811, end: 20150926
  2. DILTIAZEM [Concomitant]
     Active Substance: DILTIAZEM
     Indication: ATRIAL FLUTTER
     Dosage: 240 MG, BID
     Route: 048
     Dates: start: 20150811
  3. FOSAMAX PLUS D [Concomitant]
     Active Substance: ALENDRONATE SODIUM\CHOLECALCIFEROL
     Indication: OSTEOPOROSIS
     Dosage: 75 MG, QWK
     Route: 048

REACTIONS (2)
  - Haematemesis [Recovered/Resolved]
  - Endoscopy upper gastrointestinal tract [Recovered/Resolved]

NARRATIVE: CASE EVENT DATE: 20150926
